FAERS Safety Report 9861058 (Version 1)
Quarter: 2014Q1

REPORT INFORMATION
  Report Type: Spontaneous
  Country: ZA (occurrence: ZA)
  Receive Date: 20140202
  Receipt Date: 20140202
  Transmission Date: 20141002
  Serious: No
  Sender: FDA-Public Use
  Company Number: ZA-ALLERGAN-1303302US

PATIENT
  Sex: Male
  Weight: 14.3 kg

DRUGS (1)
  1. BOTOX [Suspect]
     Indication: MUSCLE SPASTICITY
     Dosage: 300 UNITS, SINGLE
     Route: 030

REACTIONS (3)
  - Lethargy [Unknown]
  - Eyelid ptosis [Unknown]
  - Asthenia [Unknown]
